FAERS Safety Report 18174259 (Version 1)
Quarter: 2020Q3

REPORT INFORMATION
  Report Type: Spontaneous
  Country: US (occurrence: US)
  Receive Date: 20200820
  Receipt Date: 20200820
  Transmission Date: 20201103
  Serious: Yes (Death)
  Sender: FDA-Public Use
  Company Number: None

PATIENT
  Age: 85 Year
  Sex: Male
  Weight: 59.8 kg

DRUGS (1)
  1. ATLEPLASE [ALTEPLASE INFUSION SOLUTION] [Suspect]
     Active Substance: ALTEPLASE
     Indication: CEREBROVASCULAR ACCIDENT
     Dosage: ?          OTHER FREQUENCY:ONCE;?
     Route: 041
     Dates: start: 20200717, end: 20200717

REACTIONS (5)
  - Pupillary reflex impaired [None]
  - Depressed level of consciousness [None]
  - Dyspnoea [None]
  - Mental status changes [None]
  - Subarachnoid haemorrhage [None]

NARRATIVE: CASE EVENT DATE: 20200717
